FAERS Safety Report 7610971-8 (Version None)
Quarter: 2011Q3

REPORT INFORMATION
  Report Type: 
  Country: None (occurrence: None)
  Receive Date: 20110715
  Receipt Date: 20110422
  Transmission Date: 20111222
  Serious: Yes (Death, Other)
  Sender: FDA-Public Use
  Company Number: US-BAYER-200933752NA

PATIENT
  Age: 68 Year
  Sex: Male
  Weight: 109.9 kg

DRUGS (13)
  1. MAGNEVIST [Suspect]
     Indication: NUCLEAR MAGNETIC RESONANCE IMAGING
     Dosage: 20 ML, ONCE
     Dates: start: 20070312, end: 20070312
  2. ASPIRIN [Concomitant]
  3. COUMADIN [Concomitant]
  4. MAGNEVIST [Suspect]
     Dates: start: 20070325, end: 20070325
  5. VENOFER [Concomitant]
  6. MAGNEVIST [Suspect]
     Indication: ANGIOGRAM
     Dates: start: 20060719, end: 20060719
  7. ZEMPLAR [Concomitant]
  8. TOPROL-XL [Concomitant]
  9. EPOGEN [Concomitant]
  10. MAGNEVIST [Suspect]
     Dosage: DAILY DOSE 25 ML
     Dates: start: 20060719, end: 20060719
  11. NEPHROCAPS [Concomitant]
  12. INFED [Concomitant]
  13. NEURONTIN [Concomitant]

REACTIONS (13)
  - SKIN PLAQUE [None]
  - MUSCULOSKELETAL STIFFNESS [None]
  - PAIN [None]
  - SKIN ULCER [None]
  - FIBROSIS [None]
  - RASH PAPULAR [None]
  - ERYTHEMA [None]
  - OEDEMA PERIPHERAL [None]
  - SKIN DISCOLOURATION [None]
  - MOBILITY DECREASED [None]
  - NEPHROGENIC SYSTEMIC FIBROSIS [None]
  - SKIN INDURATION [None]
  - SKIN DISORDER [None]
